FAERS Safety Report 15216336 (Version 1)
Quarter: 2018Q3

REPORT INFORMATION
  Report Type: Spontaneous
  Country: US (occurrence: US)
  Receive Date: 20180704
  Receipt Date: 20180704
  Transmission Date: 20181010
  Serious: Yes (Disabling, Other)
  Sender: FDA-Public Use
  Company Number: None

PATIENT
  Age: 51 Year
  Sex: Female
  Weight: 103.5 kg

DRUGS (8)
  1. METFORMIN [Concomitant]
     Active Substance: METFORMIN HYDROCHLORIDE
  2. CIPROFLOXIN [Suspect]
     Active Substance: CIPROFLOXACIN
     Indication: URINARY TRACT INFECTION
     Dosage: ?          QUANTITY:14 TABLET(S);?
     Route: 048
  3. IBUPROPHEN [Concomitant]
     Active Substance: IBUPROFEN
  4. CLARITIN [Concomitant]
     Active Substance: LORATADINE
  5. VITAMIN D [Concomitant]
     Active Substance: CHOLECALCIFEROL
  6. LISINOPRIL. [Concomitant]
     Active Substance: LISINOPRIL
  7. TYLENOL [Concomitant]
     Active Substance: ACETAMINOPHEN
  8. SYNTHROID [Concomitant]
     Active Substance: LEVOTHYROXINE SODIUM

REACTIONS (13)
  - Hypertension [None]
  - Bladder spasm [None]
  - Pain [None]
  - Anxiety [None]
  - Pain in extremity [None]
  - Migraine [None]
  - Tendon disorder [None]
  - Gait disturbance [None]
  - Tendon pain [None]
  - Depression [None]
  - Tendonitis [None]
  - Feeling abnormal [None]
  - Neuralgia [None]

NARRATIVE: CASE EVENT DATE: 20170608
